FAERS Safety Report 7280742-3 (Version None)
Quarter: 2011Q1

REPORT INFORMATION
  Report Type: 
  Country: None (occurrence: None)
  Receive Date: 20110208
  Receipt Date: 20110204
  Transmission Date: 20110831
  Serious: Yes (Other)
  Sender: FDA-Public Use
  Company Number: D0070228A

PATIENT
  Age: 35 Year
  Sex: Male

DRUGS (2)
  1. ZYBAN [Suspect]
     Route: 048
     Dates: start: 20110204, end: 20110204
  2. FLUOXETINE HCL [Suspect]
     Route: 048
     Dates: start: 20110204, end: 20110204

REACTIONS (4)
  - MYDRIASIS [None]
  - SUICIDE ATTEMPT [None]
  - SLOW RESPONSE TO STIMULI [None]
  - SOMNOLENCE [None]
